FAERS Safety Report 8511799-7 (Version None)
Quarter: 2012Q3

REPORT INFORMATION
  Report Type: 
  Country: None (occurrence: None)
  Receive Date: 20120716
  Receipt Date: 20120710
  Transmission Date: 20120928
  Serious: Yes (Other)
  Sender: FDA-Public Use
  Company Number: US-PFIZER INC-2012165628

PATIENT
  Sex: Female
  Weight: 68.027 kg

DRUGS (2)
  1. LEVOXYL [Suspect]
     Dosage: 137 UG, 1X/DAY
     Route: 048
     Dates: start: 20101001
  2. LEVOXYL [Suspect]
     Indication: BASEDOW'S DISEASE
     Dosage: 150 UG, 1X/DAY
     Route: 048
     Dates: start: 20060101, end: 20101001

REACTIONS (1)
  - COELIAC DISEASE [None]
